FAERS Safety Report 5214548-3 (Version None)
Quarter: 2007Q1

REPORT INFORMATION
  Report Type: 
  Country: None (occurrence: None)
  Receive Date: 20070119
  Receipt Date: 20070119
  Transmission Date: 20070707
  Serious: Yes (Hospitalization)
  Sender: FDA-Public Use
  Company Number: None

PATIENT
  Sex: Female
  Weight: 61.9 kg

DRUGS (7)
  1. CYCLOPHOSPHAMIDE [Suspect]
     Dosage: 3200 MG
     Dates: end: 20061129
  2. DOXORUBICIN HYDROCHLORIDE [Suspect]
     Dosage: 80 MG
     Dates: end: 20061129
  3. LEUCOVORIN CACIUM [Suspect]
     Dosage: 960 MG
     Dates: end: 20061211
  4. METHOTREXATE [Suspect]
     Dosage: 480 MG
     Dates: end: 20061129
  5. PREDNISONE [Suspect]
     Dosage: 750 MG
     Dates: end: 20061203
  6. RITUXIMAB (MOAB C2B8 ANTI CD20, CHIMERIC) [Suspect]
     Dosage: 600 MG
     Dates: end: 20061127
  7. VINCRISTINE SULFATE [Suspect]
     Dosage: 2 MG
     Dates: end: 20061129

REACTIONS (11)
  - ASTHENIA [None]
  - BACK PAIN [None]
  - CHEST PAIN [None]
  - DYSPNOEA [None]
  - FATIGUE [None]
  - HAEMATOCRIT DECREASED [None]
  - HAEMOGLOBIN DECREASED [None]
  - HERPES ZOSTER [None]
  - INTESTINAL PERFORATION [None]
  - PELVIC ABSCESS [None]
  - RED BLOOD CELL COUNT DECREASED [None]
